FAERS Safety Report 6308359-5 (Version None)
Quarter: 2009Q3

REPORT INFORMATION
  Report Type: 
  Country: None (occurrence: None)
  Receive Date: 20090810
  Receipt Date: 20090729
  Transmission Date: 20100115
  Serious: Yes (Hospitalization)
  Sender: FDA-Public Use
  Company Number: 2008AL011329

PATIENT
  Age: 78 Year
  Sex: Male

DRUGS (13)
  1. DIGOXIN [Suspect]
     Indication: ATRIAL FIBRILLATION
     Dosage: 0.125MG, PO
     Route: 048
  2. VERAPAMIL [Concomitant]
  3. WARFARIN SODIUM [Concomitant]
  4. RAMIPRIL [Concomitant]
  5. FUROSEMIDE [Concomitant]
  6. AZITHROMYCIN [Concomitant]
  7. SODIUM BICARBONATE [Concomitant]
  8. CEFTRIAXONE [Concomitant]
  9. ONDANSETRON [Concomitant]
  10. ALTACE [Concomitant]
  11. AMOXICILLIN [Concomitant]
  12. COZAAR [Concomitant]
  13. HYZAAR [Concomitant]

REACTIONS (10)
  - ANHEDONIA [None]
  - ANXIETY [None]
  - COLD SWEAT [None]
  - HEART RATE IRREGULAR [None]
  - INCORRECT DOSE ADMINISTERED [None]
  - MULTIPLE INJURIES [None]
  - PAIN [None]
  - PALPITATIONS [None]
  - THERAPEUTIC AGENT TOXICITY [None]
  - VISUAL IMPAIRMENT [None]
